FAERS Safety Report 7498505-2 (Version None)
Quarter: 2011Q2

REPORT INFORMATION
  Report Type: 
  Country: None (occurrence: None)
  Receive Date: 20110524
  Receipt Date: 20110506
  Transmission Date: 20111010
  Serious: Yes (Death, Other)
  Sender: FDA-Public Use
  Company Number: US-BAYER-200940611NA

PATIENT
  Age: 67 Year
  Sex: Female

DRUGS (9)
  1. ACETYLSALICYLIC ACID SRT [Concomitant]
     Dosage: 325 MG, QD
     Route: 048
  2. TRASYLOL [Suspect]
     Indication: CARDIAC OPERATION
  3. NIFEDIPINE [Concomitant]
     Dosage: 60 MG, QD
     Route: 048
  4. TOPROL-XL [Concomitant]
     Dosage: 100MG
     Route: 048
  5. TRASYLOL [Suspect]
     Indication: CORONARY ARTERY BYPASS
     Dosage: UNK
     Route: 042
     Dates: start: 20030723
  6. PRILOSEC [Concomitant]
     Dosage: 20 MG, QD
     Route: 048
     Dates: start: 20030101
  7. PREVACID [Concomitant]
  8. HYDROCHLOROTHIAZIDE [Concomitant]
     Dosage: 25 MG, QD
     Route: 048
  9. TRASYLOL [Suspect]
     Indication: HEART VALVE REPLACEMENT

REACTIONS (13)
  - ANXIETY [None]
  - RENAL IMPAIRMENT [None]
  - RENAL INJURY [None]
  - PAIN [None]
  - INJURY [None]
  - RENAL FAILURE [None]
  - EMOTIONAL DISTRESS [None]
  - FEAR [None]
  - DEATH [None]
  - MULTI-ORGAN FAILURE [None]
  - STRESS [None]
  - UNEVALUABLE EVENT [None]
  - ANHEDONIA [None]
